FAERS Safety Report 11205639 (Version 2)
Quarter: 2015Q3

REPORT INFORMATION
  Report Type: Spontaneous
  Country: US (occurrence: US)
  Receive Date: 20150622
  Receipt Date: 20150910
  Transmission Date: 20151125
  Serious: Yes (Death, Hospitalization, Other)
  Sender: FDA-Public Use
  Company Number: US-PFIZER INC-2015206247

PATIENT
  Age: 62 Year
  Sex: Male

DRUGS (18)
  1. DEPO-TESTOSTERONE [Suspect]
     Active Substance: TESTOSTERONE CYPIONATE
     Indication: HORMONE REPLACEMENT THERAPY
     Dosage: UNK, MONTHLY
     Dates: start: 20120710, end: 20130306
  2. FISH OIL [Concomitant]
     Active Substance: FISH OIL
     Indication: SUPPLEMENTATION THERAPY
     Dosage: UNK
     Dates: start: 20121115, end: 20140305
  3. MULTIVITAMIN [Concomitant]
     Active Substance: VITAMINS
     Indication: SUPPLEMENTATION THERAPY
     Dosage: UNK
     Dates: start: 20121224, end: 20131013
  4. SILDENAFIL. [Concomitant]
     Active Substance: SILDENAFIL
     Indication: ERECTILE DYSFUNCTION
     Dosage: UNK
     Dates: start: 20130412, end: 20130911
  5. NIACIN. [Concomitant]
     Active Substance: NIACIN
     Indication: SUPPLEMENTATION THERAPY
     Dosage: UNK
     Dates: start: 20130329, end: 20130723
  6. BUSPIRONE [Concomitant]
     Active Substance: BUSPIRONE HYDROCHLORIDE
     Indication: ANXIETY
     Dosage: UNK
     Dates: start: 20130612, end: 20141118
  7. DEPO-TESTOSTERONE [Suspect]
     Active Substance: TESTOSTERONE CYPIONATE
     Indication: ASTHENIA
     Dosage: UNK, MONTHLY
     Dates: start: 20130208, end: 20131001
  8. METHOCARBAMOL. [Concomitant]
     Active Substance: METHOCARBAMOL
     Indication: MUSCLE SPASMS
     Dosage: UNK
     Dates: start: 20120607, end: 20150105
  9. CETIRIZINE [Concomitant]
     Active Substance: CETIRIZINE HYDROCHLORIDE
     Indication: HYPERSENSITIVITY
     Dosage: UNK
     Dates: start: 20120710, end: 20130918
  10. HYPROMELLOSE [Concomitant]
     Active Substance: HYPROMELLOSES
     Indication: SKIN DISORDER
     Dosage: UNK
     Dates: start: 20130220, end: 20141118
  11. GABAPENTIN. [Concomitant]
     Active Substance: GABAPENTIN
     Indication: SEIZURE
     Dosage: UNK
     Dates: start: 20120710, end: 20141118
  12. AMITRIPTYLINE [Concomitant]
     Active Substance: AMITRIPTYLINE
     Indication: ANXIETY
     Dosage: UNK
     Dates: start: 20121204, end: 20150105
  13. DEPO-TESTOSTERONE [Suspect]
     Active Substance: TESTOSTERONE CYPIONATE
     Indication: ERECTILE DYSFUNCTION
  14. TRAMADOL. [Concomitant]
     Active Substance: TRAMADOL
     Indication: PAIN
     Dosage: UNK
     Dates: start: 20120706, end: 20150105
  15. ALBUTEROL. [Concomitant]
     Active Substance: ALBUTEROL
     Indication: ASTHMA
     Dosage: UNK
     Dates: start: 20130329, end: 20141205
  16. ATENOLOL. [Concomitant]
     Active Substance: ATENOLOL
     Indication: HYPERTENSION
     Dosage: UNK
     Dates: start: 20121205, end: 20141108
  17. OMEPRAZOLE. [Concomitant]
     Active Substance: OMEPRAZOLE
     Indication: GASTROOESOPHAGEAL REFLUX DISEASE
     Dosage: UNK
     Dates: start: 20121224, end: 20150305
  18. GEMFIBROZIL. [Concomitant]
     Active Substance: GEMFIBROZIL
     Indication: BLOOD CHOLESTEROL INCREASED
     Dosage: UNK
     Dates: start: 20130329, end: 20131023

REACTIONS (3)
  - Deep vein thrombosis [Unknown]
  - Myocardial infarction [Fatal]
  - Pulmonary embolism [Unknown]

NARRATIVE: CASE EVENT DATE: 20130615
